FAERS Safety Report 20498975 (Version 1)
Quarter: 2022Q1

REPORT INFORMATION
  Report Type: Other
  Country: CA (occurrence: CA)
  Receive Date: 20220222
  Receipt Date: 20220222
  Transmission Date: 20220423
  Serious: Yes (Other)
  Sender: FDA-Public Use
  Company Number: CA-APOTEX-2022AP003420

PATIENT
  Age: 53 Year
  Sex: Female

DRUGS (8)
  1. GABAPENTIN [Suspect]
     Active Substance: GABAPENTIN
     Indication: Product used for unknown indication
     Dosage: UNK
     Route: 065
  2. ALMOTRIPTAN [Suspect]
     Active Substance: ALMOTRIPTAN
     Indication: Product used for unknown indication
     Dosage: 12.5 MILLIGRAM
     Route: 065
  3. NORTRIPTYLINE [Suspect]
     Active Substance: NORTRIPTYLINE
     Indication: Product used for unknown indication
     Dosage: 10 MILLIGRAM
     Route: 065
  4. ZOMIG [Suspect]
     Active Substance: ZOLMITRIPTAN
     Indication: Product used for unknown indication
     Dosage: 2.5 MILLIGRAM
     Route: 065
  5. AIMOVIG [Suspect]
     Active Substance: ERENUMAB-AOOE
     Indication: Migraine prophylaxis
     Dosage: 70 MILLIGRAM
     Route: 058
  6. AIMOVIG [Suspect]
     Active Substance: ERENUMAB-AOOE
     Dosage: UNK
     Route: 065
  7. AMITRIPTYLINE\PERPHENAZINE [Suspect]
     Active Substance: AMITRIPTYLINE\PERPHENAZINE
     Indication: Product used for unknown indication
     Dosage: UNK
     Route: 065
  8. CAMBIA [Suspect]
     Active Substance: DICLOFENAC POTASSIUM
     Indication: Product used for unknown indication
     Dosage: 50 MILLIGRAM
     Route: 065

REACTIONS (8)
  - Brain injury [Not Recovered/Not Resolved]
  - Dry eye [Not Recovered/Not Resolved]
  - Illness [Not Recovered/Not Resolved]
  - Migraine [Not Recovered/Not Resolved]
  - Nasal ulcer [Not Recovered/Not Resolved]
  - Pruritus [Not Recovered/Not Resolved]
  - Skin ulcer [Not Recovered/Not Resolved]
  - Depression [Not Recovered/Not Resolved]
